FAERS Safety Report 12233009 (Version 1)
Quarter: 2016Q2

REPORT INFORMATION
  Report Type: Spontaneous
  Country: JP (occurrence: JP)
  Receive Date: 20160403
  Receipt Date: 20160403
  Transmission Date: 20160815
  Serious: Yes (Death)
  Sender: FDA-Public Use
  Company Number: JP-TEVA-648311ISR

PATIENT
  Age: 56 Year
  Sex: Male
  Weight: 53 kg

DRUGS (9)
  1. INTRALIPOS [Concomitant]
     Active Substance: SOYBEAN OIL
     Indication: NUTRITIONAL SUPPLEMENTATION
     Dosage: 100 ML DAILY;
     Route: 042
     Dates: start: 20150710, end: 20150710
  2. ADONA [Concomitant]
     Active Substance: CARBAZOCHROME SODIUM SULFONATE
     Indication: ANAEMIA
     Dosage: 100 MILLIGRAM DAILY;
     Route: 042
     Dates: start: 20150710, end: 20150712
  3. ACELIO [Concomitant]
     Active Substance: ACETAMINOPHEN
     Indication: ANAEMIA
     Dosage: 500 MILLIGRAM DAILY;
     Route: 042
     Dates: start: 20150705, end: 20150705
  4. DECADRON [Concomitant]
     Active Substance: DEXAMETHASONE
     Indication: ANAEMIA
     Dosage: 6.6 MILLIGRAM DAILY;
     Route: 042
     Dates: start: 20150714, end: 20150715
  5. ELNEOPA NO.2 [Concomitant]
     Active Substance: AMINO ACIDS\CARBOHYDRATES\ELECTROLYTES NOS\VITAMINS
     Indication: NUTRITIONAL SUPPLEMENTATION
     Dosage: 1500 MILLIGRAM DAILY;
     Route: 042
     Dates: start: 20150617, end: 20150714
  6. GASTER [Concomitant]
     Active Substance: FAMOTIDINE
     Indication: ANAEMIA
     Dosage: 40 MILLIGRAM DAILY;
     Route: 042
     Dates: start: 20150619, end: 20150715
  7. E-FEN BUCCAL [Suspect]
     Active Substance: FENTANYL CITRATE
     Indication: BREAKTHROUGH PAIN
     Dosage: DAILY DOSE: 0 MICROG - 300 MICROG
     Route: 002
     Dates: start: 20150630, end: 20150717
  8. FENTOS [Concomitant]
     Active Substance: FENTANYL
     Indication: CANCER PAIN
     Dosage: 1 ML DAILY;
     Route: 062
     Dates: start: 20150717, end: 20150717
  9. SOSEGON [Concomitant]
     Active Substance: PENTAZOCINE
     Indication: CANCER PAIN
     Route: 042
     Dates: start: 20150711, end: 20150711

REACTIONS (1)
  - Oesophageal carcinoma [Fatal]

NARRATIVE: CASE EVENT DATE: 20150721
